FAERS Safety Report 23741668 (Version 1)
Quarter: 2024Q2

REPORT INFORMATION
  Report Type: Spontaneous
  Country: US (occurrence: US)
  Receive Date: 20240415
  Receipt Date: 20240415
  Transmission Date: 20240715
  Serious: No
  Sender: FDA-Public Use
  Company Number: US-ASTELLAS-2023US025493

PATIENT
  Age: 80 Year
  Sex: Female

DRUGS (4)
  1. LEXISCAN [Suspect]
     Active Substance: REGADENOSON
     Indication: Cardiac stress test
     Dosage: UNK, UNKNOWN FREQ. (0.4MG/5ML INJECTION)
     Route: 065
     Dates: start: 20230822, end: 20230822
  2. LEXISCAN [Suspect]
     Active Substance: REGADENOSON
     Indication: Cardiac stress test
     Dosage: UNK, UNKNOWN FREQ. (0.4MG/5ML INJECTION)
     Route: 065
     Dates: start: 20230822, end: 20230822
  3. LEXISCAN [Suspect]
     Active Substance: REGADENOSON
     Indication: Cardiac stress test
     Dosage: UNK, UNKNOWN FREQ. (0.4MG/5ML INJECTION)
     Route: 065
     Dates: start: 20230822, end: 20230822
  4. LEXISCAN [Suspect]
     Active Substance: REGADENOSON
     Indication: Cardiac stress test
     Dosage: UNK, UNKNOWN FREQ. (0.4MG/5ML INJECTION)
     Route: 065
     Dates: start: 20230822, end: 20230822

REACTIONS (1)
  - Heart rate increased [Unknown]

NARRATIVE: CASE EVENT DATE: 20230822
